FAERS Safety Report 11852105 (Version 1)
Quarter: 2015Q4

REPORT INFORMATION
  Report Type: Spontaneous
  Country: BR (occurrence: BR)
  Receive Date: 20151218
  Receipt Date: 20151218
  Transmission Date: 20160305
  Serious: Yes (Hospitalization, Other)
  Sender: FDA-Public Use
  Company Number: BR-JNJFOC-20151211847

PATIENT
  Sex: Female

DRUGS (6)
  1. CELEBRA [Suspect]
     Active Substance: CELECOXIB
     Indication: PRODUCT USED FOR UNKNOWN INDICATION
     Route: 048
  2. TRAMAL [Suspect]
     Active Substance: TRAMADOL
     Indication: SURGERY
     Route: 065
     Dates: start: 201106
  3. LEFLUNOMIDE. [Concomitant]
     Active Substance: LEFLUNOMIDE
     Indication: ARTHRITIS
     Route: 065
  4. CELEBRA [Suspect]
     Active Substance: CELECOXIB
     Indication: PRODUCT USED FOR UNKNOWN INDICATION
     Route: 048
     Dates: start: 2010, end: 201111
  5. METHOTREXATE [Concomitant]
     Active Substance: METHOTREXATE
     Indication: SKIN CANCER
     Route: 065
  6. LYRICA [Concomitant]
     Active Substance: PREGABALIN
     Indication: SURGERY
     Route: 065
     Dates: start: 201106

REACTIONS (5)
  - Pneumonia [Unknown]
  - Calcium deficiency [Unknown]
  - Thyroid disorder [Unknown]
  - Surgery [Unknown]
  - Neoplasm malignant [Unknown]
